FAERS Safety Report 5566582-1 (Version None)
Quarter: 2007Q4

REPORT INFORMATION
  Report Type: 
  Country: None (occurrence: None)
  Receive Date: 20071219
  Receipt Date: 20071211
  Transmission Date: 20080405
  Serious: Yes (Other)
  Sender: FDA-Public Use
  Company Number: FR-JNJFOC-20071202635

PATIENT
  Age: 25 Year
  Sex: Male

DRUGS (1)
  1. EPITOMAX [Suspect]
     Indication: EPILEPSY

REACTIONS (1)
  - CATARACT [None]
